FAERS Safety Report 23228192 (Version 1)
Quarter: 2023Q4

REPORT INFORMATION
  Report Type: Spontaneous
  Country: CN (occurrence: CN)
  Receive Date: 20231125
  Receipt Date: 20231125
  Transmission Date: 20240109
  Serious: Yes (Other)
  Sender: FDA-Public Use
  Company Number: CN-002147023-NVSC2023CN249938

PATIENT
  Age: 78 Year
  Sex: Female
  Weight: 60 kg

DRUGS (1)
  1. CARBAMAZEPINE [Suspect]
     Active Substance: CARBAMAZEPINE
     Indication: Meigs^ syndrome
     Dosage: 200 MG, BID
     Route: 048
     Dates: start: 20230904, end: 20231004

REACTIONS (5)
  - Drug eruption [Recovering/Resolving]
  - Rash [Recovering/Resolving]
  - Pruritus [Recovering/Resolving]
  - Swelling [Recovering/Resolving]
  - Product use in unapproved indication [Unknown]

NARRATIVE: CASE EVENT DATE: 20231004
